FAERS Safety Report 13225530 (Version 1)
Quarter: 2017Q1

REPORT INFORMATION
  Report Type: Spontaneous
  Country: US (occurrence: US)
  Receive Date: 20170211
  Receipt Date: 20170211
  Transmission Date: 20170428
  Serious: No
  Sender: FDA-Public Use
  Company Number: None

PATIENT
  Age: 65 Year
  Sex: Female

DRUGS (2)
  1. IBRANCE [Suspect]
     Active Substance: PALBOCICLIB
     Indication: BREAST CANCER
     Dosage: IBRANCE 125 MG 1 DAILY FOR 21 DAYS THEN OFF OF 7 DAYS BY MOUTH
     Route: 048
     Dates: start: 20170118
  2. IBRANCE [Suspect]
     Active Substance: PALBOCICLIB
     Indication: BRAIN NEOPLASM MALIGNANT
     Dosage: IBRANCE 125 MG 1 DAILY FOR 21 DAYS THEN OFF OF 7 DAYS BY MOUTH
     Route: 048
     Dates: start: 20170118

REACTIONS (2)
  - Fatigue [None]
  - Nausea [None]

NARRATIVE: CASE EVENT DATE: 20170209
